FAERS Safety Report 21445721 (Version 1)
Quarter: 2022Q4

REPORT INFORMATION
  Report Type: Spontaneous
  Country: US (occurrence: None)
  Receive Date: 20221011
  Receipt Date: 20221011
  Transmission Date: 20230112
  Serious: No
  Sender: FDA-Public Use
  Company Number: None

PATIENT
  Sex: 0

DRUGS (7)
  1. INSULIN LISPRO [Suspect]
     Active Substance: INSULIN LISPRO
  2. INSULIN GLARGINE [Suspect]
     Active Substance: INSULIN GLARGINE
  3. GLIPIZIDE [Suspect]
     Active Substance: GLIPIZIDE
  4. GLUCOTROL [Concomitant]
     Active Substance: GLIPIZIDE
  5. METFORMIN [Concomitant]
     Active Substance: METFORMIN HYDROCHLORIDE
  6. HUMALOG [Concomitant]
     Active Substance: INSULIN LISPRO
  7. NOVOLIN NOS [Concomitant]
     Active Substance: INSULIN HUMAN

REACTIONS (2)
  - Treatment failure [None]
  - Drug ineffective [None]
